FAERS Safety Report 21948195 (Version 1)
Quarter: 2023Q1

REPORT INFORMATION
  Report Type: Spontaneous
  Country: US (occurrence: US)
  Receive Date: 20230203
  Receipt Date: 20230203
  Transmission Date: 20230418
  Serious: Yes (Other)
  Sender: FDA-Public Use
  Company Number: US-TEVA-2023-US-2850346

PATIENT
  Age: 53 Year
  Sex: Female

DRUGS (7)
  1. MYCOPHENOLATE MOFETIL [Suspect]
     Active Substance: MYCOPHENOLATE MOFETIL
     Indication: Immunosuppressant drug therapy
     Route: 065
  2. CYCLOSPORINE [Suspect]
     Active Substance: CYCLOSPORINE
     Indication: Immunosuppressant drug therapy
     Route: 065
  3. PREDNISONE [Suspect]
     Active Substance: PREDNISONE
     Indication: Immunosuppressant drug therapy
     Route: 065
  4. ITRACONAZOLE [Interacting]
     Active Substance: ITRACONAZOLE
     Indication: Disseminated blastomycosis
     Route: 065
  5. WARFARIN [Interacting]
     Active Substance: WARFARIN
     Indication: Product used for unknown indication
     Route: 065
  6. VORICONAZOLE [Concomitant]
     Active Substance: VORICONAZOLE
     Indication: Disseminated blastomycosis
     Route: 065
  7. AMPHOTERICIN B [Concomitant]
     Active Substance: AMPHOTERICIN B
     Indication: Disseminated blastomycosis
     Route: 065

REACTIONS (2)
  - Disseminated blastomycosis [Recovered/Resolved]
  - Drug interaction [Unknown]
